FAERS Safety Report 8143529-5 (Version None)
Quarter: 2012Q1

REPORT INFORMATION
  Report Type: 
  Country: None (occurrence: None)
  Receive Date: 20120217
  Receipt Date: 20120209
  Transmission Date: 20120608
  Serious: Yes (Hospitalization)
  Sender: FDA-Public Use
  Company Number: FR-PFIZER INC-2012038137

PATIENT
  Age: 20 Year
  Sex: Male

DRUGS (1)
  1. DOXYCYCLINE HYCLATE [Suspect]
     Indication: ACNE
     Dosage: 100MG/DAY

REACTIONS (4)
  - PNEUMONITIS [None]
  - INTERSTITIAL LUNG DISEASE [None]
  - NIGHT SWEATS [None]
  - PULMONARY EOSINOPHILIA [None]
